FAERS Safety Report 14499395 (Version 1)
Quarter: 2018Q1

REPORT INFORMATION
  Report Type: Spontaneous
  Country: CA (occurrence: CA)
  Receive Date: 20180207
  Receipt Date: 20180207
  Transmission Date: 20180509
  Serious: Yes (Other)
  Sender: FDA-Public Use
  Company Number: CA-BAUSCH-BL-2018-003266

PATIENT
  Age: 65 Year
  Sex: Male

DRUGS (1)
  1. VERTEPORFIN (NVO) [Suspect]
     Active Substance: VERTEPORFIN
     Indication: CHORIORETINOPATHY
     Route: 042

REACTIONS (3)
  - Subretinal fluid [Recovering/Resolving]
  - Disease recurrence [Unknown]
  - Off label use [Unknown]
